FAERS Safety Report 5908079-2 (Version None)
Quarter: 2008Q4

REPORT INFORMATION
  Report Type: 
  Country: None (occurrence: None)
  Receive Date: 20081003
  Receipt Date: 20080922
  Transmission Date: 20090506
  Serious: Yes (Hospitalization, Other)
  Sender: FDA-Public Use
  Company Number: US-PFIZER INC-2008080354

PATIENT
  Sex: Male
  Weight: 79 kg

DRUGS (14)
  1. NEURONTIN [Suspect]
     Indication: NEURALGIA
     Dates: start: 20080101
  2. LYRICA [Suspect]
     Indication: NEURALGIA
     Dates: start: 20080101, end: 20080101
  3. IBUPROFEN [Suspect]
  4. NEXIUM [Concomitant]
  5. PLAVIX [Concomitant]
  6. ACETYLSALICYLIC ACID SRT [Concomitant]
  7. ATENOLOL [Concomitant]
  8. GLIPIZIDE [Concomitant]
  9. FLOMAX [Concomitant]
  10. LISINOPRIL [Concomitant]
  11. LANTUS [Concomitant]
  12. PLETAL [Concomitant]
  13. MULTI-VITAMINS [Concomitant]
  14. SPIRONOLACTONE [Concomitant]

REACTIONS (7)
  - EYE SWELLING [None]
  - GANGRENE [None]
  - LIP SWELLING [None]
  - SWELLING FACE [None]
  - SWOLLEN TONGUE [None]
  - ULCER HAEMORRHAGE [None]
  - WEIGHT INCREASED [None]
